FAERS Safety Report 16255153 (Version 2)
Quarter: 2019Q2

REPORT INFORMATION
  Report Type: Spontaneous
  Country: US (occurrence: US)
  Receive Date: 20190430
  Receipt Date: 20190503
  Transmission Date: 20190711
  Serious: Yes (Death, Life-Threatening, Hospitalization)
  Sender: FDA-Public Use
  Company Number: US-ALKERMES INC.-ALK-2019-002288

PATIENT
  Age: 50 Year
  Sex: Male

DRUGS (1)
  1. VIVITROL [Suspect]
     Active Substance: NALTREXONE
     Indication: ALCOHOLISM
     Dosage: 380 MG, QMO
     Route: 030
     Dates: start: 20190218, end: 20190218

REACTIONS (6)
  - Cardiac failure [Fatal]
  - Hyperbilirubinaemia [Unknown]
  - Bleeding varicose vein [Unknown]
  - Hepatitis alcoholic [Unknown]
  - Streptococcal sepsis [Fatal]
  - Hepatic failure [Unknown]

NARRATIVE: CASE EVENT DATE: 20190418
